FAERS Safety Report 4375317-X (Version None)
Quarter: 2004Q2

REPORT INFORMATION
  Report Type: 
  Country: None (occurrence: None)
  Receive Date: 20040608
  Receipt Date: 20040607
  Transmission Date: 20050107
  Serious: Yes (Death)
  Sender: FDA-Public Use
  Company Number: 04-05-0684

PATIENT
  Age: 63 Year
  Sex: Female
  Weight: 102.0593 kg

DRUGS (1)
  1. CLOZAPINE [Suspect]
     Indication: SCHIZOPHRENIA
     Dosage: 75-375 MG QD ORAL
     Route: 048
     Dates: start: 20030601, end: 20040401

REACTIONS (1)
  - NON-SMALL CELL LUNG CANCER STAGE IIIA [None]
